FAERS Safety Report 14274882 (Version 1)
Quarter: 2017Q4

REPORT INFORMATION
  Report Type: Spontaneous
  Country: US (occurrence: US)
  Receive Date: 20171212
  Receipt Date: 20171212
  Transmission Date: 20180321
  Serious: No
  Sender: FDA-Public Use
  Company Number: US-BION-006434

PATIENT
  Sex: Female

DRUGS (5)
  1. ATENOLOL/ATENOLOL HYDROCHLORIDE [Concomitant]
  2. ERGOCALCIFEROL. [Suspect]
     Active Substance: ERGOCALCIFEROL
     Indication: PRODUCT USED FOR UNKNOWN INDICATION
     Dosage: STRENGTH: 50,000 IU
     Dates: start: 20170425
  3. OMEPRAZOLE. [Concomitant]
     Active Substance: OMEPRAZOLE
  4. LOSARTAN. [Concomitant]
     Active Substance: LOSARTAN
  5. LOPERAMIDE [Concomitant]
     Active Substance: LOPERAMIDE
     Dosage: ONCE IN A WHILE
     Dates: end: 20170614

REACTIONS (3)
  - Abdominal pain upper [Unknown]
  - Dizziness [Unknown]
  - Faeces discoloured [Not Recovered/Not Resolved]
